FAERS Safety Report 14039423 (Version 2)
Quarter: 2017Q4

REPORT INFORMATION
  Report Type: Spontaneous
  Country: US (occurrence: US)
  Receive Date: 20171004
  Receipt Date: 20171027
  Transmission Date: 20180321
  Serious: No
  Sender: FDA-Public Use
  Company Number: US-GLAXOSMITHKLINE-US2017GSK150368

PATIENT
  Sex: Female
  Weight: 78.5 kg

DRUGS (1)
  1. NUCALA [Suspect]
     Active Substance: MEPOLIZUMAB
     Indication: ASTHMA
     Dosage: 1 ML, U
     Route: 058
     Dates: start: 20160914, end: 20171002

REACTIONS (1)
  - Drug ineffective [Unknown]
